FAERS Safety Report 17421098 (Version 2)
Quarter: 2020Q1

REPORT INFORMATION
  Report Type: Spontaneous
  Country: BR (occurrence: BR)
  Receive Date: 20200214
  Receipt Date: 20200320
  Transmission Date: 20200409
  Serious: Yes (Other)
  Sender: FDA-Public Use
  Company Number: BR-NAPPMUNDI-GBR-2019-0073634

PATIENT
  Age: 34 Year
  Sex: Female

DRUGS (7)
  1. RESTIVA [Suspect]
     Active Substance: BUPRENORPHINE
     Dosage: UNK (STRENGTH 5MG)
     Route: 062
     Dates: start: 201902
  2. RESTIVA [Suspect]
     Active Substance: BUPRENORPHINE
     Indication: FIBROMYALGIA
     Dosage: UNK (STRENGTH 5MG)
     Route: 062
  3. RESTIVA [Suspect]
     Active Substance: BUPRENORPHINE
     Dosage: UNK (STRENGTH 10MG)
     Route: 062
     Dates: start: 201910
  4. PREGABALIN. [Concomitant]
     Active Substance: PREGABALIN
     Dosage: 150 MG, DAILY
  5. TRAZODONE HYDROCHLORIDE. [Concomitant]
     Active Substance: TRAZODONE HYDROCHLORIDE
     Dosage: 50 MG, DAILY
  6. DULOXETINE. [Concomitant]
     Active Substance: DULOXETINE
     Dosage: 60 MG, DAILY
  7. OMEPRAZOL                          /00661201/ [Concomitant]
     Active Substance: OMEPRAZOLE
     Dosage: 20 MG, DAILY

REACTIONS (5)
  - Product dose omission [Unknown]
  - Systemic lupus erythematosus [Not Recovered/Not Resolved]
  - Drug withdrawal syndrome [Recovering/Resolving]
  - Exposure during pregnancy [Not Recovered/Not Resolved]
  - Drug withdrawal syndrome [Recovering/Resolving]

NARRATIVE: CASE EVENT DATE: 201910
